FAERS Safety Report 25841645 (Version 1)
Quarter: 2025Q3

REPORT INFORMATION
  Report Type: Report from Study
  Country: TR (occurrence: TR)
  Receive Date: 20250924
  Receipt Date: 20250924
  Transmission Date: 20251020
  Serious: Yes (Death)
  Sender: ABBVIE
  Company Number: TR-ABBVIE-6473297

PATIENT
  Age: 76 Year
  Sex: Male

DRUGS (7)
  1. CARBIDOPA\LEVODOPA [Suspect]
     Active Substance: CARBIDOPA\LEVODOPA
     Indication: Parkinson^s disease
     Route: 050
     Dates: start: 20250912
  2. CARBIDOPA\LEVODOPA [Suspect]
     Active Substance: CARBIDOPA\LEVODOPA
  3. AVODART [Concomitant]
     Active Substance: DUTASTERIDE
     Indication: Benign prostatic hyperplasia
     Dosage: FORM STRENGTH: 0.5 MG
     Route: 048
     Dates: start: 2019
  4. SILODOSIN [Concomitant]
     Active Substance: SILODOSIN
     Indication: Benign prostatic hyperplasia
     Dosage: FORM STRENGTH: 8 MG
     Route: 048
     Dates: start: 2019
  5. HYDROXYZINE [Concomitant]
     Active Substance: HYDROXYZINE HYDROCHLORIDE
     Indication: Anxiety
     Dosage: FORM STRENGTH: 25 MG
     Route: 048
     Dates: start: 2019
  6. ATORVASTATIN [Concomitant]
     Active Substance: ATORVASTATIN
     Indication: Arrhythmia
     Dosage: FORM STRENGTH: 20 MG
     Route: 048
     Dates: start: 2015
  7. Doneptin [Concomitant]
     Indication: Dementia Alzheimer^s type
     Dosage: FORM STRENGTH: 10 MG
     Route: 048
     Dates: start: 2021

REACTIONS (2)
  - Death [Fatal]
  - General physical health deterioration [Not Recovered/Not Resolved]

NARRATIVE: CASE EVENT DATE: 20250920
